FAERS Safety Report 6482020-9 (Version None)
Quarter: 2009Q4

REPORT INFORMATION
  Report Type: 
  Country: None (occurrence: None)
  Receive Date: 20091208
  Receipt Date: 20090908
  Transmission Date: 20100525
  Serious: No
  Sender: FDA-Public Use
  Company Number: US-AMGEN-KDL342079

PATIENT
  Sex: Female
  Weight: 120 kg

DRUGS (7)
  1. ENBREL [Suspect]
     Indication: PSORIATIC ARTHROPATHY
     Route: 058
     Dates: start: 20090324, end: 20090408
  2. VICODIN [Concomitant]
  3. VALIUM [Concomitant]
  4. ROBAXIN [Concomitant]
  5. LISINOPRIL [Concomitant]
  6. SULFASALAZINE [Concomitant]
  7. HYDROCHLOROTHIAZIDE [Concomitant]

REACTIONS (9)
  - DIARRHOEA [None]
  - DIZZINESS [None]
  - FEELING JITTERY [None]
  - HEADACHE [None]
  - OEDEMA PERIPHERAL [None]
  - PARAESTHESIA [None]
  - PSORIASIS [None]
  - RASH [None]
  - VISUAL IMPAIRMENT [None]
